FAERS Safety Report 13870400 (Version 2)
Quarter: 2017Q3

REPORT INFORMATION
  Report Type: Report from Study
  Country: US (occurrence: US)
  Receive Date: 20170815
  Receipt Date: 20170825
  Transmission Date: 20171127
  Serious: Yes (Other)
  Sender: FDA-Public Use
  Company Number: US-JAZZ-2016-US-023125

PATIENT
  Sex: Male
  Weight: 84.35 kg

DRUGS (51)
  1. ACETYL L-CARNITINE                 /00949201/ [Concomitant]
  2. MAGNESIUM GLUCEPTATE [Concomitant]
     Active Substance: MAGNESIUM GLUCEPTATE
  3. MUPIROCIN. [Concomitant]
     Active Substance: MUPIROCIN
  4. VITAMIN D3 [Concomitant]
     Active Substance: CHOLECALCIFEROL
  5. XYREM [Suspect]
     Active Substance: SODIUM OXYBATE
     Dosage: 5 G, QD
     Route: 048
     Dates: start: 201511
  6. BELSOMRA [Concomitant]
     Active Substance: SUVOREXANT
  7. MEDROL [Concomitant]
     Active Substance: METHYLPREDNISOLONE
  8. TRAMADOL HCL [Concomitant]
     Active Substance: TRAMADOL HYDROCHLORIDE
  9. AYR SALINE [Concomitant]
  10. DOCUSATE SODIUM. [Concomitant]
     Active Substance: DOCUSATE SODIUM
  11. FIORICET [Concomitant]
     Active Substance: ACETAMINOPHEN\BUTALBITAL\CAFFEINE
  12. LASIX [Concomitant]
     Active Substance: FUROSEMIDE
  13. SELENIUM [Concomitant]
     Active Substance: SELENIUM
  14. TURMERIC                           /01079601/ [Concomitant]
     Active Substance: HERBALS\TURMERIC
  15. XYREM [Suspect]
     Active Substance: SODIUM OXYBATE
     Dosage: 3.75 G, BID
     Route: 048
     Dates: start: 2015, end: 2015
  16. 5-METHYLTETRAHYDROFOLATE [Concomitant]
  17. BENTYL [Concomitant]
     Active Substance: DICYCLOMINE HYDROCHLORIDE
  18. NORVASC [Concomitant]
     Active Substance: AMLODIPINE BESYLATE
  19. PROMETHAZINE [Concomitant]
     Active Substance: PROMETHAZINE\PROMETHAZINE HYDROCHLORIDE
  20. XYREM [Suspect]
     Active Substance: SODIUM OXYBATE
     Dosage: 4 G, QD
     Route: 048
     Dates: start: 201511
  21. OXYCODONE AND ACETAMINOPHEN [Concomitant]
     Active Substance: ACETAMINOPHEN\OXYCODONE HYDROCHLORIDE
  22. NYSTATIN. [Concomitant]
     Active Substance: NYSTATIN
  23. DIPHENHYDRAMINE. [Concomitant]
     Active Substance: DIPHENHYDRAMINE
  24. MOBIC [Concomitant]
     Active Substance: MELOXICAM
  25. SYNTHROID [Concomitant]
     Active Substance: LEVOTHYROXINE SODIUM
  26. DIPHENHIST [Concomitant]
     Active Substance: DIPHENHYDRAMINE HYDROCHLORIDE
  27. LIDOCAINE HCL [Concomitant]
     Active Substance: LIDOCAINE HYDROCHLORIDE
  28. PROTONIX                           /00661201/ [Concomitant]
     Active Substance: OMEPRAZOLE
  29. ACAI BERRY [Concomitant]
  30. AFRIN [Concomitant]
     Active Substance: OXYMETAZOLINE
  31. ASTELIN                            /00085801/ [Concomitant]
     Active Substance: AZELASTINE HYDROCHLORIDE
  32. FLONASE                            /00908302/ [Concomitant]
     Active Substance: MOMETASONE FUROATE
  33. ACETAMINOPHEN. [Concomitant]
     Active Substance: ACETAMINOPHEN
  34. GLUCOSAMINE CHONDROITIN            /01430901/ [Concomitant]
  35. PROMETHAZINE [Concomitant]
     Active Substance: PROMETHAZINE\PROMETHAZINE HYDROCHLORIDE
  36. VALTREX [Concomitant]
     Active Substance: VALACYCLOVIR HYDROCHLORIDE
  37. METHYLCOBALAMIN. [Concomitant]
     Active Substance: METHYLCOBALAMIN
  38. HYDROCODONE BITARTRATE AND ACETAMINOPHEN [Concomitant]
     Active Substance: ACETAMINOPHEN\HYDROCODONE BITARTRATE
  39. TESTOSTERONE CYPIONATE. [Concomitant]
     Active Substance: TESTOSTERONE CYPIONATE
  40. LYRICA [Concomitant]
     Active Substance: PREGABALIN
  41. PROPRANOLOL [Concomitant]
     Active Substance: PROPRANOLOL HYDROCHLORIDE
  42. DEMEROL [Concomitant]
     Active Substance: MEPERIDINE HYDROCHLORIDE
  43. FLEXERIL [Concomitant]
     Active Substance: CYCLOBENZAPRINE HYDROCHLORIDE
  44. KLOR-CON [Concomitant]
     Active Substance: POTASSIUM CHLORIDE
  45. XYREM [Suspect]
     Active Substance: SODIUM OXYBATE
     Indication: NARCOLEPSY
     Dosage: 2.5 G, BID
     Route: 048
     Dates: start: 201505, end: 2015
  46. GABAPENTIN. [Concomitant]
     Active Substance: GABAPENTIN
  47. BIOTIN [Concomitant]
     Active Substance: BIOTIN
  48. TRIAMCINOLONE [Concomitant]
     Active Substance: TRIAMCINOLONE
  49. CLOMIPHENE CITRATE. [Concomitant]
     Active Substance: CLOMIPHENE CITRATE
  50. PROTONIX                           /00661201/ [Concomitant]
     Active Substance: OMEPRAZOLE
  51. VITAMIN B12 [Concomitant]
     Active Substance: CYANOCOBALAMIN

REACTIONS (6)
  - Weight increased [Unknown]
  - Neck pain [Recovering/Resolving]
  - Blood pressure increased [Unknown]
  - Epistaxis [Recovering/Resolving]
  - Back pain [Recovering/Resolving]
  - Fatigue [Unknown]
